FAERS Safety Report 6839972-4 (Version None)
Quarter: 2010Q3

REPORT INFORMATION
  Report Type: 
  Country: None (occurrence: None)
  Receive Date: 20100714
  Receipt Date: 20100706
  Transmission Date: 20110219
  Serious: Yes (Hospitalization)
  Sender: FDA-Public Use
  Company Number: IT-JNJFOC-20100604676

PATIENT
  Sex: Female

DRUGS (6)
  1. RISPERDAL [Suspect]
     Indication: SCHIZOPHRENIA
     Route: 048
  2. RISPERDAL [Suspect]
     Route: 048
  3. ALPRAZOLAM [Suspect]
     Indication: SCHIZOPHRENIA
     Route: 048
  4. ALPRAZOLAM [Suspect]
     Route: 048
  5. CARBOLITHIUM [Suspect]
     Indication: SCHIZOPHRENIA
     Route: 048
  6. CARBOLITHIUM [Suspect]
     Dosage: 18 CAPSULES
     Route: 048

REACTIONS (6)
  - BRADYPHRENIA [None]
  - HEPATITIS TOXIC [None]
  - HYPOKINESIA [None]
  - MULTIPLE DRUG OVERDOSE INTENTIONAL [None]
  - SELF INJURIOUS BEHAVIOUR [None]
  - SOPOR [None]
